FAERS Safety Report 15244053 (Version 1)
Quarter: 2018Q3

REPORT INFORMATION
  Report Type: Spontaneous
  Country: CH (occurrence: CH)
  Receive Date: 20180806
  Receipt Date: 20180806
  Transmission Date: 20181010
  Serious: Yes (Hospitalization, Other)
  Sender: FDA-Public Use
  Company Number: CH-JUBILANT CADISTA PHARMACEUTICALS-2018JUB00305

PATIENT
  Age: 48 Year
  Sex: Female

DRUGS (10)
  1. QUETIAPINE. [Suspect]
     Active Substance: QUETIAPINE
     Dosage: 2.5 G, ONCE (XR)
     Route: 048
     Dates: start: 2016, end: 2016
  2. QUETIAPINE. [Suspect]
     Active Substance: QUETIAPINE
     Dosage: 1 G, ONCE (IR)
     Route: 048
     Dates: start: 2017, end: 2017
  3. PARACETAMOL [Suspect]
     Active Substance: ACETAMINOPHEN
     Dosage: 65 G, ONCE
     Route: 048
     Dates: start: 2017, end: 2017
  4. PARACETAMOL [Suspect]
     Active Substance: ACETAMINOPHEN
     Dosage: 65 G, ONCE
     Route: 048
     Dates: start: 2016, end: 2016
  5. PIPAMERONE [Concomitant]
     Active Substance: PIPAMPERONE
     Dosage: UNK, ONCE
     Route: 048
     Dates: start: 2016, end: 2016
  6. ALCOHOL. [Concomitant]
     Active Substance: ALCOHOL
     Dosage: 1.42 %, ONCE
     Route: 048
     Dates: start: 2016, end: 2016
  7. QUETIAPINE. [Suspect]
     Active Substance: QUETIAPINE
     Dosage: 1 G, ONCE (IR)
     Route: 048
     Dates: start: 2016, end: 2016
  8. ALCOHOL. [Concomitant]
     Active Substance: ALCOHOL
     Dosage: 1.91 %, ONCE
     Route: 048
     Dates: start: 2017, end: 2017
  9. TRAMADOL. [Concomitant]
     Active Substance: TRAMADOL
     Dosage: 800 MG, ONCE
     Route: 048
     Dates: start: 2017, end: 2017
  10. DICLOFENAC [Concomitant]
     Active Substance: DICLOFENAC
     Dosage: 1.5 G, ONCE
     Route: 048
     Dates: start: 2017, end: 2017

REACTIONS (5)
  - Toxicity to various agents [Recovered/Resolved]
  - Bezoar [Recovered/Resolved]
  - Hypotonia [Recovered/Resolved]
  - Coma [Recovered/Resolved]
  - Hepatotoxicity [Recovered/Resolved]
